FAERS Safety Report 6284637 (Version 3)
Quarter: 2013Q2

REPORT INFORMATION
  Report Type: Spontaneous
  Country: GB (occurrence: GB)
  Receive Date: 20070410
  Receipt Date: 20130620
  Transmission Date: 20140414
  Serious: Yes (Hospitalization, Other)
  Sender: FDA-Public Use
  Company Number: GB-PFIZER INC-2007025745

PATIENT
  Age: 16 Month
  Sex: Female

DRUGS (14)
  1. PHENYTOIN [Suspect]
     Indication: CONVULSION
     Dosage: 9 MG, 1X/DAY
  2. PHENYTOIN [Suspect]
     Dosage: 9.5 ML, 2X/DAY
  3. PHENYTOIN [Suspect]
     Dosage: 9.0 ML, 2X/DAY
  4. LAMOTRIGINE [Suspect]
     Dosage: 75 MG, 2X/DAY
     Route: 048
  5. LAMOTRIGINE [Suspect]
     Dosage: 50MG IN THE MORNING AND 75MG IN THE EVENING
  6. LAMOTRIGINE [Suspect]
     Dosage: 100 MG, 2X/DAY
  7. PHENOXYMETHYLPENICILLIN POTASSIUM [Suspect]
  8. AUGMENTIN [Suspect]
     Indication: INFLUENZA
     Dosage: UNK
     Dates: start: 19960101
  9. FLUCONAZOLE [Concomitant]
  10. BIO-CAL [Concomitant]
     Dosage: UNK, 3X/DAY
  11. IBUPROFEN [Concomitant]
     Indication: PAIN
     Dosage: 200 MG MAXIMUM
  12. MELATONIN [Concomitant]
     Dosage: 10 MG DAILY AT NGHT
  13. VITAMIN E [Concomitant]
  14. ZINC [Concomitant]

REACTIONS (28)
  - Convulsion [Not Recovered/Not Resolved]
  - Pharyngeal oedema [Not Recovered/Not Resolved]
  - Candida infection [Not Recovered/Not Resolved]
  - Abnormal faeces [Unknown]
  - Diarrhoea [Unknown]
  - Epistaxis [Unknown]
  - Lactose intolerance [Unknown]
  - Upper limb fracture [Unknown]
  - Upper respiratory tract infection [Not Recovered/Not Resolved]
  - Urinary retention [Not Recovered/Not Resolved]
  - Rash [Not Recovered/Not Resolved]
  - Vomiting projectile [Unknown]
  - Drug ineffective [Unknown]
  - Autism [Not Recovered/Not Resolved]
  - Body temperature decreased [Unknown]
  - Peripheral coldness [Unknown]
  - Crying [Unknown]
  - Impaired self-care [Unknown]
  - Pain [Unknown]
  - Tremor [Unknown]
  - Drug hypersensitivity [Unknown]
  - Cognitive disorder [Unknown]
  - Epilepsy [Unknown]
  - Status epilepticus [Unknown]
  - Dysbacteriosis [Unknown]
  - Food intolerance [Unknown]
  - Developmental delay [Unknown]
  - Visual acuity reduced [Unknown]
